FAERS Safety Report 8131924-X (Version None)
Quarter: 2012Q1

REPORT INFORMATION
  Report Type: 
  Country: None (occurrence: None)
  Receive Date: 20120208
  Receipt Date: 20120126
  Transmission Date: 20120608
  Serious: Yes (Other)
  Sender: FDA-Public Use
  Company Number: CIP11002115

PATIENT
  Age: 64 Year
  Sex: Female

DRUGS (23)
  1. MIRALAX /00754501/ (MACROGOL) [Concomitant]
  2. ERGOCALCIFEROL [Concomitant]
  3. MULTIVITAMINS (ASCORBIC ACID, ERGOCALCIFEROL, FOLIC ACID, NICOTINAMIDE [Concomitant]
  4. METAMUCIL /00091301/ (PSYLLIUM HYDROPHILIC MUCILLOID) [Concomitant]
  5. NEXIUM [Concomitant]
  6. ERYTHROMYCIN [Concomitant]
  7. FLUTICASONE /00972202/ (FLUTICASONE PROPIONATE) [Concomitant]
  8. ACTONEL [Suspect]
     Indication: OSTEOPOROSIS
     Dosage: 35 MG ONCE WEEKLY, ORAL
     Route: 048
     Dates: start: 20041113
  9. VITAMIN E /00110501/ (TOCOPHEROL) [Concomitant]
  10. DOXYCYCLINE [Concomitant]
  11. PROTONIX (PANTOPRAZOLE SODIUM SESQUIHYDRATE) [Concomitant]
  12. CALCIUM CARBONATE [Concomitant]
  13. PRILOSEC [Concomitant]
  14. OS-CAL /00188401/ (CALCIUM, ERGOCALCIFEROL) [Concomitant]
  15. VITAMIN C /00008001/ (ASCORBIC ACID) [Concomitant]
  16. NIACIN [Concomitant]
  17. ZITHROMAX [Concomitant]
  18. AMOXICILLIN [Concomitant]
  19. SKELAXIN /00611501/ (METAXALONE) [Concomitant]
  20. ACTONEL [Suspect]
     Indication: OSTEOPOROSIS
     Dosage: 150 MG ONCE MONTHLY, ORAL
     Route: 048
     Dates: start: 20090306, end: 20100726
  21. FOSAMAX [Suspect]
     Indication: OSTEOPOROSIS
     Dosage: 10 MG UNKNOWN, ORAL 70 MG ONCE WEEKLY, ORAL
     Route: 048
     Dates: start: 19990701, end: 20010715
  22. FOSAMAX [Suspect]
     Indication: OSTEOPOROSIS
     Dosage: 10 MG UNKNOWN, ORAL 70 MG ONCE WEEKLY, ORAL
     Route: 048
     Dates: start: 20010715, end: 20041113
  23. LORATADINE [Concomitant]

REACTIONS (16)
  - FEMUR FRACTURE [None]
  - OSTEOPOROSIS [None]
  - GASTRIC ULCER [None]
  - PATHOLOGICAL FRACTURE [None]
  - FRACTURE NONUNION [None]
  - BONE MARROW OEDEMA [None]
  - ACTIVITIES OF DAILY LIVING IMPAIRED [None]
  - GAIT DISTURBANCE [None]
  - LOW TURNOVER OSTEOPATHY [None]
  - STRESS [None]
  - STRESS FRACTURE [None]
  - FALL [None]
  - WEIGHT BEARING DIFFICULTY [None]
  - CONTUSION [None]
  - MUSCULOSKELETAL DISCOMFORT [None]
  - OSTEOMA [None]
